FAERS Safety Report 9163537 (Version 1)
Quarter: 2013Q1

REPORT INFORMATION
  Report Type: Spontaneous
  Country: US (occurrence: US)
  Receive Date: 20130314
  Receipt Date: 20130314
  Transmission Date: 20140127
  Serious: Yes (Hospitalization)
  Sender: FDA-Public Use
  Company Number: US-ROCHE-1201668

PATIENT
  Age: 74 Year
  Sex: Female

DRUGS (4)
  1. RITUXAN [Suspect]
     Indication: PRODUCT USED FOR UNKNOWN INDICATION
     Route: 065
  2. CYCLOPHOSPHAMIDE [Concomitant]
  3. DOXORUBICIN [Concomitant]
  4. PREDNISONE [Concomitant]

REACTIONS (1)
  - Colitis ischaemic [Unknown]
